FAERS Safety Report 10073292 (Version 1)
Quarter: 2014Q2

REPORT INFORMATION
  Report Type: Spontaneous
  Country: US (occurrence: US)
  Receive Date: 20140411
  Receipt Date: 20140411
  Transmission Date: 20141212
  Serious: No
  Sender: FDA-Public Use
  Company Number: US-PFIZER INC-2014098638

PATIENT
  Sex: Female

DRUGS (4)
  1. PREMARIN [Suspect]
     Dosage: 0.625 MG, UNK
     Dates: start: 1991, end: 201311
  2. COUMADIN [Suspect]
     Dosage: UNK
     Dates: end: 20130318
  3. AMLODIPINE [Concomitant]
     Dosage: UNK
  4. PLAVIX [Concomitant]
     Dosage: UNK

REACTIONS (8)
  - Hot flush [Unknown]
  - Dyspepsia [Unknown]
  - Skin burning sensation [Unknown]
  - Erythema [Unknown]
  - Insomnia [Unknown]
  - Onychoclasis [Recovering/Resolving]
  - Product quality issue [Unknown]
  - Dysphagia [Unknown]
